FAERS Safety Report 23550838 (Version 2)
Quarter: 2024Q1

REPORT INFORMATION
  Report Type: Report from Study
  Country: US (occurrence: US)
  Receive Date: 20240221
  Receipt Date: 20240314
  Transmission Date: 20240410
  Serious: Yes (Death, Hospitalization)
  Sender: FDA-Public Use
  Company Number: US-ABBVIE-5648308

PATIENT
  Age: 78 Year
  Sex: Female

DRUGS (1)
  1. HUMIRA [Suspect]
     Active Substance: ADALIMUMAB
     Indication: Osteoarthritis
     Dosage: CITRATE FREE;  FORM STRENGTH: 40 MG
     Route: 058
     Dates: start: 20231101, end: 20240213

REACTIONS (4)
  - Cardio-respiratory arrest [Fatal]
  - Arthralgia [Unknown]
  - Off label use [Unknown]
  - Hospitalisation [Recovered/Resolved]

NARRATIVE: CASE EVENT DATE: 20231201
